FAERS Safety Report 10082948 (Version 2)
Quarter: 2014Q2

REPORT INFORMATION
  Report Type: Spontaneous
  Country: JP (occurrence: JP)
  Receive Date: 20140417
  Receipt Date: 20140502
  Transmission Date: 20141212
  Serious: Yes (Other)
  Sender: FDA-Public Use
  Company Number: JP-UCBSA-118340

PATIENT
  Age: 43 Year
  Sex: Female
  Weight: 58 kg

DRUGS (7)
  1. CIMZIA [Suspect]
     Indication: RHEUMATOID ARTHRITIS
     Dosage: 200 MG SYRINGE
     Route: 058
     Dates: start: 20140403, end: 20140403
  2. RHEUMATREX [Concomitant]
     Route: 048
     Dates: start: 20131016
  3. PREDNISOLONE [Concomitant]
     Dosage: DAILY DOSE: 5 MG
     Route: 048
     Dates: start: 20130918
  4. FOLIAMIN [Concomitant]
     Route: 048
     Dates: start: 20131016
  5. ETANERCEPT [Concomitant]
     Dosage: 50 MG
     Dates: end: 20140326
  6. VOLTAREN [Concomitant]
     Route: 048
     Dates: start: 20131003
  7. MUCOSTA [Concomitant]
     Route: 048
     Dates: start: 20131003

REACTIONS (2)
  - Urticaria [Recovered/Resolved]
  - Eyelid oedema [Recovering/Resolving]
